FAERS Safety Report 23751120 (Version 1)
Quarter: 2024Q2

REPORT INFORMATION
  Report Type: Spontaneous
  Country: PL (occurrence: PL)
  Receive Date: 20240417
  Receipt Date: 20240417
  Transmission Date: 20240716
  Serious: Yes (Hospitalization, Other)
  Sender: FDA-Public Use
  Company Number: PL-002147023-NVSC2024PL071464

PATIENT
  Age: 3 Month
  Sex: Male

DRUGS (3)
  1. RITUXIMAB [Suspect]
     Active Substance: RITUXIMAB
     Indication: Product used for unknown indication
     Dosage: 375 MG/M2
     Route: 065
  2. RITUXIMAB [Suspect]
     Active Substance: RITUXIMAB
     Dosage: 66 MG, QW
     Route: 065
  3. ELTROMBOPAG OLAMINE [Suspect]
     Active Substance: ELTROMBOPAG OLAMINE
     Indication: Thrombocytopenia
     Dosage: 25 MG, QD (ADMINISTERED INTO THE TUBE)
     Route: 065

REACTIONS (11)
  - Laboratory test abnormal [Unknown]
  - Central nervous system lesion [Unknown]
  - Haemorrhagic disorder [Unknown]
  - Haematochezia [Not Recovered/Not Resolved]
  - Hypertension [Unknown]
  - Restlessness [Unknown]
  - Crying [Unknown]
  - Hyperglycaemia [Unknown]
  - Anaemia [Not Recovered/Not Resolved]
  - Diarrhoea [Unknown]
  - Tachypnoea [Unknown]

NARRATIVE: CASE EVENT DATE: 20240305
